FAERS Safety Report 7885272-3 (Version None)
Quarter: 2011Q4

REPORT INFORMATION
  Report Type: 
  Country: None (occurrence: None)
  Receive Date: 20111102
  Receipt Date: 20111026
  Transmission Date: 20120403
  Serious: Yes (Other)
  Sender: FDA-Public Use
  Company Number: CHPA2011US15087

PATIENT
  Age: 47 Year
  Sex: Male

DRUGS (2)
  1. EXCEDRIN (MIGRAINE) [Suspect]
     Indication: HEADACHE
     Dosage: 4 CAPSULES IN 14 HRS
     Route: 048
     Dates: start: 20111021, end: 20111022
  2. EXFORGE HCT [Concomitant]
     Indication: HYPERTENSION
     Dosage: 10/3/12.5, QD
     Route: 048

REACTIONS (2)
  - OVERDOSE [None]
  - BLOOD PRESSURE INCREASED [None]
